FAERS Safety Report 5735703-X (Version None)
Quarter: 2008Q2

REPORT INFORMATION
  Report Type: 
  Country: None (occurrence: None)
  Receive Date: 20080512
  Receipt Date: 20080502
  Transmission Date: 20081010
  Serious: Yes (Other)
  Sender: FDA-Public Use
  Company Number: GB-ABBOTT-08P-167-0450333-00

PATIENT
  Sex: Female

DRUGS (4)
  1. VALPROIC ACID [Suspect]
     Indication: EPILEPSY
     Dosage: 2000 MG, DAILY
  2. VALPROIC ACID [Suspect]
     Route: 064
  3. LAMOTRIGINE [Concomitant]
     Indication: CONVULSION PROPHYLAXIS
     Dosage: 50 MG, DAILY
  4. LAMOTRIGINE [Concomitant]

REACTIONS (1)
  - ABORTION SPONTANEOUS [None]
